FAERS Safety Report 21335578 (Version 5)
Quarter: 2023Q1

REPORT INFORMATION
  Report Type: Spontaneous
  Country: JP (occurrence: JP)
  Receive Date: 20220915
  Receipt Date: 20230307
  Transmission Date: 20230418
  Serious: Yes (Other)
  Sender: FDA-Public Use
  Company Number: JP-MSD-M2022-38602

PATIENT
  Age: 72 Year
  Sex: Male

DRUGS (1)
  1. KEYTRUDA [Suspect]
     Active Substance: PEMBROLIZUMAB
     Indication: Nasal sinus cancer
     Dosage: 200 MILLIGRAM, Q3W
     Route: 041
     Dates: start: 202010, end: 20201207

REACTIONS (1)
  - Pneumonia cryptococcal [Recovering/Resolving]

NARRATIVE: CASE EVENT DATE: 20201127
